FAERS Safety Report 5732063-5 (Version None)
Quarter: 2008Q2

REPORT INFORMATION
  Report Type: 
  Country: None (occurrence: None)
  Receive Date: 20080508
  Receipt Date: 20080501
  Transmission Date: 20081010
  Serious: Yes (Hospitalization)
  Sender: FDA-Public Use
  Company Number: US-BAXTER-2008BH004256

PATIENT
  Age: 31 Year
  Sex: Female
  Weight: 105 kg

DRUGS (3)
  1. HEPARIN SODIUM [Suspect]
     Indication: CENTRAL VENOUS CATHETERISATION
     Dosage: DOSE UNIT:UNKNOWN
     Route: 042
     Dates: start: 20060901, end: 20080201
  2. LOVENOX [Concomitant]
     Indication: THROMBOSIS PROPHYLAXIS
     Dosage: DOSE UNIT:UNKNOWN
     Route: 065
  3. METOPROLOL TARTRATE [Concomitant]
     Indication: DRUG USE FOR UNKNOWN INDICATION
     Route: 048

REACTIONS (11)
  - DEEP VEIN THROMBOSIS [None]
  - DYSGEUSIA [None]
  - FLUSHING [None]
  - HAEMATEMESIS [None]
  - HAEMOGLOBIN DECREASED [None]
  - INJECTION SITE IRRITATION [None]
  - RECTAL HAEMORRHAGE [None]
  - SEPSIS [None]
  - SUPERIOR VENA CAVAL STENOSIS [None]
  - THROMBOSIS [None]
  - VENA CAVA THROMBOSIS [None]
